FAERS Safety Report 9475517 (Version 1)
Quarter: 2013Q3

REPORT INFORMATION
  Report Type: Other
  Country: DE (occurrence: DE)
  Receive Date: 20130826
  Receipt Date: 20130826
  Transmission Date: 20140515
  Serious: Yes (Other)
  Sender: FDA-Public Use
  Company Number: DE-BRISTOL-MYERS SQUIBB COMPANY-19189471

PATIENT
  Age: 8 Year
  Sex: Male

DRUGS (1)
  1. DASATINIB [Suspect]
     Indication: ACUTE LYMPHOCYTIC LEUKAEMIA
     Dosage: 1 X 70 MG/M2?REINTRODUCED AT A LOW DOSE OF 20 MG DAILY

REACTIONS (4)
  - Immunosuppression [Unknown]
  - Post transplant lymphoproliferative disorder [Recovered/Resolved]
  - Cytomegalovirus infection [Recovered/Resolved]
  - Adenovirus infection [Recovered/Resolved]
